FAERS Safety Report 5069281-8 (Version None)
Quarter: 2006Q3

REPORT INFORMATION
  Report Type: 
  Country: None (occurrence: None)
  Receive Date: 20060714
  Receipt Date: 20060330
  Transmission Date: 20061208
  Serious: No
  Sender: FDA-Public Use
  Company Number: 2006SP001473

PATIENT
  Age: 37 Year
  Sex: Male
  Weight: 87.3174 kg

DRUGS (6)
  1. LUNESTA [Suspect]
     Indication: INSOMNIA
     Dosage: 3 MG;PRN;ORAL
     Route: 048
     Dates: start: 20060104
  2. METFORMIN [Concomitant]
  3. ASPIRIN [Concomitant]
  4. PLAVIX [Concomitant]
  5. LOVASTATIN [Concomitant]
  6. ZETIA [Concomitant]

REACTIONS (1)
  - SOMNOLENCE [None]
